FAERS Safety Report 7020352-6 (Version None)
Quarter: 2010Q3

REPORT INFORMATION
  Report Type: 
  Country: None (occurrence: None)
  Receive Date: 20100924
  Receipt Date: 20100914
  Transmission Date: 20110219
  Serious: Yes (Death)
  Sender: FDA-Public Use
  Company Number: CV20100509

PATIENT
  Age: 60 Year
  Sex: Female

DRUGS (10)
  1. PROPOFOL [Suspect]
     Indication: PRODUCT USED FOR UNKNOWN INDICATION
     Dosage: DOSAGE FORM: UNSPECIFIED
  2. FENTANYL CITRATE(FENTANYL CITRATE) (FENTANYL CITRATE) [Concomitant]
  3. ESOMEPRAZOLE (ESOMEPRAZOLE) (ESOMEPRAZOLE) [Concomitant]
  4. ISOTONIC SODIUM CHLORIDE (SODIUM CHLORIDE) (SODIUM CHLORIDE) [Concomitant]
  5. TERLIPRESSIN (TERLIPRESSIN) (TERLIPRESSIN) [Concomitant]
  6. PROMETHOMPLEX S-TIM(PROTHROMPLEX S-TIM) (PROTHROMPLEX S-TIM) [Concomitant]
  7. CALCIUM CHLORIDE DIHYDRATE (CALCIUM CHRLODIE DIHYDRATE) (CALCIUM CHLOR [Concomitant]
  8. EPHEDRINE (EPHEDRINE) (EPHEDRINE) [Concomitant]
  9. BRICANTYL (TERBUTALINE SULFATE) (TERBUTALINE SULFATE) [Concomitant]
  10. PHENYLEPHRINE (PHENYLEPHRINE) (PHENYLEPHRINE) [Concomitant]

REACTIONS (4)
  - BLISTER [None]
  - INCORRECT ROUTE OF DRUG ADMINISTRATION [None]
  - NECROSIS [None]
  - RASH ERYTHEMATOUS [None]
